FAERS Safety Report 12763379 (Version 1)
Quarter: 2016Q3

REPORT INFORMATION
  Report Type: Spontaneous
  Country: US (occurrence: US)
  Receive Date: 20160919
  Receipt Date: 20160919
  Transmission Date: 20161109
  Serious: Yes (Other)
  Sender: FDA-Public Use
  Company Number: None

PATIENT
  Age: 34 Year
  Sex: Female
  Weight: 62.1 kg

DRUGS (1)
  1. RESTASIS [Suspect]
     Active Substance: CYCLOSPORINE
     Indication: DRY EYE
     Route: 001
     Dates: start: 20160914, end: 20160916

REACTIONS (6)
  - Eye irritation [None]
  - Eye pain [None]
  - Dry eye [None]
  - Incorrect dose administered [None]
  - Dry mouth [None]
  - Tongue dry [None]

NARRATIVE: CASE EVENT DATE: 20160916
